FAERS Safety Report 5413241-1 (Version None)
Quarter: 2007Q3

REPORT INFORMATION
  Report Type: 
  Country: None (occurrence: None)
  Receive Date: 20070814
  Receipt Date: 20070807
  Transmission Date: 20080115
  Serious: Yes (Other)
  Sender: FDA-Public Use
  Company Number: BR-BAYER-200710697GDS

PATIENT
  Age: 62 Year
  Sex: Male
  Weight: 89 kg

DRUGS (2)
  1. VIVANZA [Suspect]
     Indication: ERECTILE DYSFUNCTION
     Dosage: UNIT DOSE: 20 MG
     Route: 048
  2. UNOPROSTO (DOXAZOSINA) [Concomitant]
     Indication: BENIGN PROSTATIC HYPERPLASIA
     Dosage: UNIT DOSE: 2 MG
     Route: 048
     Dates: start: 20050101

REACTIONS (3)
  - EYE PAIN [None]
  - LACRIMATION INCREASED [None]
  - VISUAL DISTURBANCE [None]
